FAERS Safety Report 16741995 (Version 1)
Quarter: 2019Q3

REPORT INFORMATION
  Report Type: Spontaneous
  Country: GB (occurrence: GB)
  Receive Date: 20190826
  Receipt Date: 20190826
  Transmission Date: 20191005
  Serious: Yes (Other)
  Sender: FDA-Public Use
  Company Number: GB-TEVA-2019-GB-1096600

PATIENT
  Age: 30 Year
  Sex: Female
  Weight: 60 kg

DRUGS (1)
  1. CLARITHROMYCIN. [Suspect]
     Active Substance: CLARITHROMYCIN
     Indication: CAMPYLOBACTER INFECTION
     Dosage: 1000 MILLIGRAM
     Route: 048
     Dates: start: 20190723

REACTIONS (6)
  - Dizziness [Unknown]
  - Fatigue [Unknown]
  - Anxiety [Unknown]
  - Insomnia [Unknown]
  - Depressed mood [Unknown]
  - Dry mouth [Unknown]

NARRATIVE: CASE EVENT DATE: 20190723
